FAERS Safety Report 18703227 (Version 1)
Quarter: 2021Q1

REPORT INFORMATION
  Report Type: Spontaneous
  Country: US (occurrence: US)
  Receive Date: 20210105
  Receipt Date: 20210105
  Transmission Date: 20210419
  Serious: Yes (Other)
  Sender: FDA-Public Use
  Company Number: US-ELI_LILLY_AND_COMPANY-US202012013127

PATIENT
  Sex: Female

DRUGS (6)
  1. INSULIN LISPRO LILLY [Suspect]
     Active Substance: INSULIN LISPRO
     Indication: PRODUCT USED FOR UNKNOWN INDICATION
     Dosage: 7 U, TID
     Route: 065
     Dates: start: 2010
  2. ENTRESTO [Concomitant]
     Active Substance: SACUBITRIL\VALSARTAN
     Indication: CARDIAC DISORDER
  3. LANTUS [Concomitant]
     Active Substance: INSULIN GLARGINE
     Indication: DIABETES MELLITUS
  4. INSULIN LISPRO LILLY [Suspect]
     Active Substance: INSULIN LISPRO
     Dosage: 7 U, TID
     Route: 065
  5. INSULIN LISPRO LILLY [Suspect]
     Active Substance: INSULIN LISPRO
     Indication: PRODUCT USED FOR UNKNOWN INDICATION
     Dosage: 7 U, TID
     Route: 065
     Dates: start: 2010
  6. INSULIN LISPRO LILLY [Suspect]
     Active Substance: INSULIN LISPRO
     Dosage: 7 U, TID
     Route: 065

REACTIONS (5)
  - Glycosylated haemoglobin increased [Unknown]
  - Renal disorder [Unknown]
  - Inappropriate schedule of product administration [Recovering/Resolving]
  - Blood glucose increased [Recovering/Resolving]
  - Blood glucose decreased [Unknown]
